FAERS Safety Report 6736296-0 (Version None)
Quarter: 2010Q2

REPORT INFORMATION
  Report Type: 
  Country: None (occurrence: None)
  Receive Date: 20100521
  Receipt Date: 20100513
  Transmission Date: 20101027
  Serious: Yes (Hospitalization, Other)
  Sender: FDA-Public Use
  Company Number: US-GENZYME-THYM-1001507

PATIENT
  Sex: Male

DRUGS (6)
  1. THYMOGLOBULIN [Suspect]
     Indication: PROPHYLAXIS AGAINST TRANSPLANT REJECTION
     Dosage: 125 MG, QD
     Route: 042
     Dates: start: 20100501, end: 20100501
  2. THYMOGLOBULIN [Suspect]
     Dosage: 125 MG, QD
     Route: 042
     Dates: start: 20100503, end: 20100503
  3. MYCOPHENOLATE MOFETIL [Concomitant]
     Indication: IMMUNOSUPPRESSION
  4. CORTICOSTEROID NOS [Concomitant]
     Indication: IMMUNOSUPPRESSION
  5. ANTIVIRALS NOS [Concomitant]
     Indication: DRUG USE FOR UNKNOWN INDICATION
  6. FUROSEMIDE [Concomitant]
     Indication: DRUG USE FOR UNKNOWN INDICATION

REACTIONS (1)
  - LIVER TRANSPLANT REJECTION [None]
